FAERS Safety Report 9434238 (Version 1)
Quarter: 2013Q3

REPORT INFORMATION
  Report Type: Spontaneous
  Country: US (occurrence: None)
  Receive Date: 20130730
  Receipt Date: 20130730
  Transmission Date: 20140515
  Serious: Yes (Life-Threatening)
  Sender: FDA-Public Use
  Company Number: None

PATIENT
  Age: 74 Year
  Sex: Male
  Weight: 89.81 kg

DRUGS (2)
  1. ASACOL [Suspect]
     Indication: COLITIS
     Dosage: 800MG ONCE DAILY PO
     Route: 048
     Dates: start: 20130612, end: 20130615
  2. WARFARIN [Suspect]
     Indication: ATRIAL FIBRILLATION
     Dosage: 4MG 1 TABLET DAILY PO
     Route: 048
     Dates: start: 20030801, end: 20130729

REACTIONS (1)
  - Haemorrhage [None]
